FAERS Safety Report 21795852 (Version 1)
Quarter: 2022Q4

REPORT INFORMATION
  Report Type: Spontaneous
  Country: AU (occurrence: AU)
  Receive Date: 20221229
  Receipt Date: 20221229
  Transmission Date: 20230113
  Serious: Yes (Hospitalization)
  Sender: FDA-Public Use
  Company Number: AU-TEVA-2022-AU-2839874

PATIENT
  Sex: Female

DRUGS (2)
  1. ARIPIPRAZOLE [Suspect]
     Active Substance: ARIPIPRAZOLE
     Indication: Product used for unknown indication
     Route: 030
     Dates: start: 20220701
  2. ARIPIPRAZOLE [Suspect]
     Active Substance: ARIPIPRAZOLE
     Route: 048

REACTIONS (12)
  - Abdominal pain [Unknown]
  - Dizziness [Unknown]
  - Chest pain [Unknown]
  - Confusional state [Unknown]
  - Dehydration [Unknown]
  - Gingival pain [Unknown]
  - Headache [Unknown]
  - Herpes zoster [Unknown]
  - Hypotension [Unknown]
  - Myalgia [Unknown]
  - Peripheral swelling [Unknown]
  - Oropharyngeal discomfort [Unknown]

NARRATIVE: CASE EVENT DATE: 20220701
